FAERS Safety Report 11433614 (Version 1)
Quarter: 2015Q3

REPORT INFORMATION
  Report Type: Spontaneous
  Country: DE (occurrence: DE)
  Receive Date: 20150831
  Receipt Date: 20150831
  Transmission Date: 20151125
  Serious: Yes (Other)
  Sender: FDA-Public Use
  Company Number: DE-DRREDDYS-GER/GER/15/0050305

PATIENT
  Age: 53 Year
  Sex: Male
  Weight: 106 kg

DRUGS (1)
  1. CIPROFLOXACIN. [Suspect]
     Active Substance: CIPROFLOXACIN
     Indication: EPIDIDYMITIS
     Route: 048
     Dates: start: 20150718

REACTIONS (6)
  - Tinnitus [Unknown]
  - Hypertension [Unknown]
  - Headache [Unknown]
  - Fatigue [Unknown]
  - Bradycardia [Unknown]
  - Asthenia [Unknown]

NARRATIVE: CASE EVENT DATE: 20150728
